FAERS Safety Report 4534506-1 (Version None)
Quarter: 2004Q4

REPORT INFORMATION
  Report Type: 
  Country: None (occurrence: None)
  Receive Date: 20041222
  Receipt Date: 20040929
  Transmission Date: 20050328
  Serious: Yes (Life-Threatening, Hospitalization)
  Sender: FDA-Public Use
  Company Number: SEWYE073429SEP04

PATIENT
  Sex: Female

DRUGS (3)
  1. ENBREL [Suspect]
     Indication: DRUG USE FOR UNKNOWN INDICATION
     Route: 058
     Dates: start: 20031128, end: 20040907
  2. METHOTREXATE [Concomitant]
     Dosage: DOSE UNKNOWN
     Dates: start: 20030403
  3. PREDNISOLONE [Concomitant]
     Dosage: DOSE UNKNOWN
     Dates: start: 20020513

REACTIONS (1)
  - BREAST CANCER FEMALE [None]
